FAERS Safety Report 25913470 (Version 2)
Quarter: 2025Q4

REPORT INFORMATION
  Report Type: Spontaneous
  Country: JP (occurrence: JP)
  Receive Date: 20251013
  Receipt Date: 20251014
  Transmission Date: 20260118
  Serious: Yes (Hospitalization)
  Sender: PFIZER
  Company Number: JP-PFIZER INC-PV202500119316

PATIENT
  Age: 56 Year
  Sex: Female

DRUGS (3)
  1. PACLITAXEL [Suspect]
     Active Substance: PACLITAXEL
     Indication: Fallopian tube cancer stage III
     Dosage: UNK, CYCLIC, VIA AN INDWELLING CENTRAL PORT
     Route: 042
  2. BEVACIZUMAB [Suspect]
     Active Substance: BEVACIZUMAB
     Indication: Fallopian tube cancer stage III
     Dosage: UNK, CYCLIC, VIA AN INDWELLING CENTRAL PORT
     Route: 042
  3. CARBOPLATIN [Suspect]
     Active Substance: CARBOPLATIN
     Indication: Fallopian tube cancer stage III
     Dosage: UNK, CYCLIC, VIA AN INDWELLING CENTRAL PORT
     Route: 042

REACTIONS (2)
  - Pulmonary sarcoidosis [Recovered/Resolved]
  - Sarcoidosis [Recovered/Resolved]
